FAERS Safety Report 11099488 (Version 3)
Quarter: 2015Q2

REPORT INFORMATION
  Report Type: Report from Study
  Country: US (occurrence: US)
  Receive Date: 20150508
  Receipt Date: 20150613
  Transmission Date: 20150821
  Serious: Yes (Other)
  Sender: FDA-Public Use
  Company Number: US-BIOGENIDEC-2015BI060279

PATIENT
  Age: 49 Year
  Sex: Female

DRUGS (2)
  1. TECFIDERA [Suspect]
     Active Substance: DIMETHYL FUMARATE
     Indication: MULTIPLE SCLEROSIS
     Route: 048
     Dates: start: 20140825, end: 20150414
  2. TECFIDERA [Suspect]
     Active Substance: DIMETHYL FUMARATE
     Indication: MULTIPLE SCLEROSIS
     Route: 048
     Dates: start: 20140818, end: 20140824

REACTIONS (8)
  - White blood cell count decreased [Unknown]
  - Immune system disorder [Unknown]
  - T-lymphocyte count decreased [Unknown]
  - Laboratory test abnormal [Unknown]
  - Decreased immune responsiveness [Not Recovered/Not Resolved]
  - Underweight [Not Recovered/Not Resolved]
  - White blood cell count abnormal [Unknown]
  - CD8 lymphocytes decreased [Not Recovered/Not Resolved]

NARRATIVE: CASE EVENT DATE: 20150410
